FAERS Safety Report 10634187 (Version 1)
Quarter: 2014Q4

REPORT INFORMATION
  Report Type: Spontaneous
  Country: US (occurrence: None)
  Receive Date: 20141203
  Receipt Date: 20141203
  Transmission Date: 20150529
  Serious: Yes (Other)
  Sender: FDA-Public Use
  Company Number: 2014SA155839

PATIENT
  Sex: Female

DRUGS (7)
  1. AUBAGIO [Suspect]
     Active Substance: TERIFLUNOMIDE
     Indication: MULTIPLE SCLEROSIS
     Route: 048
     Dates: start: 20141104
  2. XANAX [Concomitant]
     Active Substance: ALPRAZOLAM
  3. COUMADIN [Concomitant]
     Active Substance: WARFARIN SODIUM
  4. COPAXONE [Concomitant]
     Active Substance: GLATIRAMER ACETATE
  5. ROBITUSSIN (GUAIFENESIN) [Concomitant]
     Active Substance: GUAIFENESIN
  6. REBIF [Concomitant]
     Active Substance: INTERFERON BETA-1A
  7. AVONEX [Concomitant]
     Active Substance: INTERFERON BETA-1A

REACTIONS (17)
  - Weight decreased [None]
  - Vomiting [None]
  - Anxiety [None]
  - Headache [None]
  - Diarrhoea [None]
  - Crying [None]
  - Dysuria [None]
  - Heart rate increased [None]
  - Nausea [None]
  - Hypoaesthesia [None]
  - Nasal congestion [None]
  - Hot flush [None]
  - Decreased appetite [None]
  - Urinary retention [None]
  - Feeling jittery [None]
  - Affect lability [None]
  - Muscle spasms [None]
